FAERS Safety Report 5967478-3 (Version None)
Quarter: 2008Q4

REPORT INFORMATION
  Report Type: 
  Country: None (occurrence: None)
  Receive Date: 20081125
  Receipt Date: 20081115
  Transmission Date: 20090506
  Serious: Yes (Other)
  Sender: FDA-Public Use
  Company Number: US-PFIZER INC-2008085024

PATIENT
  Sex: Female
  Weight: 52 kg

DRUGS (6)
  1. MEDROXYPROGESTERONE ACETATE [Suspect]
     Indication: CONTRACEPTION
     Route: 030
     Dates: start: 20061201, end: 20061201
  2. MEDROXYPROGESTERONE ACETATE [Suspect]
     Route: 030
     Dates: start: 20080827, end: 20080827
  3. LAMICTAL [Concomitant]
  4. XANAX [Concomitant]
  5. SEROQUEL [Concomitant]
  6. NAPROSYN [Concomitant]

REACTIONS (2)
  - DRUG INEFFECTIVE [None]
  - UNINTENDED PREGNANCY [None]
